FAERS Safety Report 24889170 (Version 2)
Quarter: 2025Q1

REPORT INFORMATION
  Report Type: Report from Study
  Country: KR (occurrence: KR)
  Receive Date: 20250127
  Receipt Date: 20250305
  Transmission Date: 20250409
  Serious: Yes (Death)
  Sender: KARYOPHARM THERAPEUTICS
  Company Number: KR-ANTENGENE-20250102974

PATIENT
  Age: 75 Year
  Sex: Male

DRUGS (16)
  1. SELINEXOR [Suspect]
     Active Substance: SELINEXOR
     Indication: Plasma cell myeloma
     Dosage: 80 MG, 2X/WEEK
     Route: 048
     Dates: start: 20240711, end: 20240715
  2. SULFAMETHOXAZOLE\TRIMETHOPRIM [Concomitant]
     Active Substance: SULFAMETHOXAZOLE\TRIMETHOPRIM
     Indication: Prophylaxis
     Dosage: UNK, QD
     Route: 048
     Dates: start: 20240711
  3. ALMAGEL-F [Concomitant]
     Indication: Prophylaxis
     Dosage: UNK, TID
     Route: 048
     Dates: start: 20240711
  4. ONSERAN [Concomitant]
     Indication: Prophylaxis
     Dosage: 8 MG, QD
     Route: 048
     Dates: start: 20240711
  5. LERCANIDIPINE HYDROCHLORIDE [Concomitant]
     Active Substance: LERCANIDIPINE HYDROCHLORIDE
     Indication: Hypertension
     Dosage: 10 MG, QD
     Route: 048
     Dates: start: 20240711
  6. NALOXONE HYDROCHLORIDE\OXYCODONE HYDROCHLORIDE [Concomitant]
     Active Substance: NALOXONE HYDROCHLORIDE\OXYCODONE HYDROCHLORIDE
     Indication: Plasma cell myeloma
     Dosage: UNK, BID
     Route: 048
     Dates: start: 20240711
  7. DUROCEPTOL [Concomitant]
     Indication: Diabetes mellitus
     Dosage: 30 MG, QD
     Route: 048
     Dates: start: 20240711
  8. LANSOPRAZOLE [Concomitant]
     Active Substance: LANSOPRAZOLE
     Indication: Prophylaxis
     Dosage: 15 MG, QD
     Route: 048
     Dates: start: 20240711
  9. CRESTOR [Concomitant]
     Active Substance: ROSUVASTATIN CALCIUM
     Indication: Hypertension
     Dosage: 10 MG, QD
     Route: 048
     Dates: start: 20240711
  10. DIABEX [Concomitant]
     Active Substance: METFORMIN HYDROCHLORIDE
     Indication: Diabetes mellitus
     Dosage: 500 MG, BID
     Route: 048
     Dates: start: 20240711
  11. OXYCODONE HYDROCHLORIDE [Concomitant]
     Active Substance: OXYCODONE HYDROCHLORIDE
     Indication: Plasma cell myeloma
     Dosage: 5 MG, BID
     Route: 048
     Dates: start: 20240711
  12. MACPERAN [METOCLOPRAMIDE] [Concomitant]
     Indication: Prophylaxis
     Dosage: UNK, TID
     Route: 048
     Dates: start: 20240711
  13. MEMANTINE HYDROCHLORIDE [Concomitant]
     Active Substance: MEMANTINE HYDROCHLORIDE
     Indication: Parkinson^s disease
     Dosage: UNK, QD
     Route: 048
     Dates: start: 20240604
  14. SEROQUEL XR [Concomitant]
     Active Substance: QUETIAPINE FUMARATE
     Indication: Parkinson^s disease
     Dosage: 50 MG, QD
     Route: 048
     Dates: start: 20240604
  15. ABILIFY [Concomitant]
     Active Substance: ARIPIPRAZOLE
     Indication: Parkinson^s disease
     Dosage: 1 MG, QD
     Route: 048
     Dates: start: 20240604
  16. DEXAMETHASONE [Concomitant]
     Active Substance: DEXAMETHASONE
     Indication: Plasma cell myeloma
     Route: 048
     Dates: start: 20240711

REACTIONS (3)
  - Death [Fatal]
  - Fatigue [Not Recovered/Not Resolved]
  - Delirium [Not Recovered/Not Resolved]

NARRATIVE: CASE EVENT DATE: 20240715
